FAERS Safety Report 12238017 (Version 1)
Quarter: 2016Q2

REPORT INFORMATION
  Report Type: Spontaneous
  Country: FR (occurrence: FR)
  Receive Date: 20160405
  Receipt Date: 20160405
  Transmission Date: 20160815
  Serious: Yes (Other)
  Sender: FDA-Public Use
  Company Number: FR-ROCHE-1736034

PATIENT
  Age: 73 Year
  Sex: Female

DRUGS (4)
  1. ALIMTA [Suspect]
     Active Substance: PEMETREXED DISODIUM
     Indication: LYMPHANGIOSIS CARCINOMATOSA
     Route: 042
     Dates: start: 201501, end: 201511
  2. CARBOPLATINE [Suspect]
     Active Substance: CARBOPLATIN
     Indication: LYMPHANGIOSIS CARCINOMATOSA
     Route: 042
     Dates: start: 201501, end: 201509
  3. AVASTIN [Suspect]
     Active Substance: BEVACIZUMAB
     Route: 042
     Dates: start: 201603
  4. AVASTIN [Suspect]
     Active Substance: BEVACIZUMAB
     Indication: LYMPHANGIOSIS CARCINOMATOSA
     Route: 042
     Dates: start: 201501, end: 20151229

REACTIONS (1)
  - Periarthritis [Not Recovered/Not Resolved]

NARRATIVE: CASE EVENT DATE: 2015
